FAERS Safety Report 4352652-2 (Version None)
Quarter: 2004Q2

REPORT INFORMATION
  Report Type: 
  Country: None (occurrence: None)
  Receive Date: 20040504
  Receipt Date: 20040407
  Transmission Date: 20050107
  Serious: Yes (Hospitalization)
  Sender: FDA-Public Use
  Company Number: DK-JNJFOC-20040304836

PATIENT
  Sex: Female
  Weight: 65 kg

DRUGS (4)
  1. RISPERDAL [Suspect]
     Indication: DRUG USE FOR UNKNOWN INDICATION
     Dosage: 1/2 TABLET X 2
  2. AKINETON [Concomitant]
     Dosage: 3 X DAILY
  3. IMOVANE [Concomitant]
  4. HEXASOPTIN [Concomitant]

REACTIONS (8)
  - CONFUSIONAL STATE [None]
  - DEMENTIA ALZHEIMER'S TYPE [None]
  - GAIT DISTURBANCE [None]
  - MEMORY IMPAIRMENT [None]
  - MOVEMENT DISORDER [None]
  - STRABISMUS [None]
  - URINARY TRACT INFECTION ENTEROCOCCAL [None]
  - VIBRATION TEST ABNORMAL [None]
